FAERS Safety Report 18210723 (Version 1)
Quarter: 2020Q3

REPORT INFORMATION
  Report Type: Report from Study
  Country: IN (occurrence: IN)
  Receive Date: 20200829
  Receipt Date: 20200829
  Transmission Date: 20201103
  Serious: Yes (Death)
  Sender: FDA-Public Use
  Company Number: NVSC2020IN238749

PATIENT
  Age: 44 Year
  Sex: Female

DRUGS (2)
  1. SPEXIB [Suspect]
     Active Substance: CERITINIB
     Dosage: 150 MG, QD
     Route: 065
     Dates: start: 20191021
  2. SPEXIB [Suspect]
     Active Substance: CERITINIB
     Indication: NON-SMALL CELL LUNG CANCER
     Dosage: 450 MG, QD
     Route: 065
     Dates: start: 20180411, end: 20191020

REACTIONS (2)
  - Death [Fatal]
  - Product use issue [Recovering/Resolving]

NARRATIVE: CASE EVENT DATE: 20191021
